FAERS Safety Report 9386930 (Version 2)
Quarter: 2013Q3

REPORT INFORMATION
  Report Type: Spontaneous
  Country: DK (occurrence: DK)
  Receive Date: 20130708
  Receipt Date: 20130730
  Transmission Date: 20140515
  Serious: Yes (Hospitalization)
  Sender: FDA-Public Use
  Company Number: DK-MYLANLABS-2013S1014108

PATIENT
  Sex: Male
  Weight: 56 kg

DRUGS (4)
  1. OLANZAPINE [Suspect]
     Indication: SCHIZOPHRENIA
     Route: 048
     Dates: start: 1998
  2. RIVOTRIL [Concomitant]
     Indication: SCHIZOPHRENIA
     Route: 048
     Dates: start: 1998, end: 201207
  3. NEXIUM [Concomitant]
     Indication: ULCER
     Dosage: STRENGTH: 40 MG
     Route: 048
     Dates: start: 2011
  4. CALCICHEW [Concomitant]
     Indication: OSTEOPOROSIS
     Route: 048
     Dates: start: 2010

REACTIONS (14)
  - Dysphagia [Not Recovered/Not Resolved]
  - Pneumonia [Recovered/Resolved]
  - Slow speech [Not Recovered/Not Resolved]
  - Dysarthria [Not Recovered/Not Resolved]
  - Mental impairment [Not Recovered/Not Resolved]
  - Muscle fatigue [Not Recovered/Not Resolved]
  - Loss of consciousness [Not Recovered/Not Resolved]
  - Amnesia [Not Recovered/Not Resolved]
  - Disorientation [Not Recovered/Not Resolved]
  - Disturbance in attention [Not Recovered/Not Resolved]
  - Facial paresis [Not Recovered/Not Resolved]
  - Slow response to stimuli [Not Recovered/Not Resolved]
  - Impaired driving ability [Not Recovered/Not Resolved]
  - Gait disturbance [Not Recovered/Not Resolved]
